FAERS Safety Report 24431135 (Version 2)
Quarter: 2024Q4

REPORT INFORMATION
  Report Type: Spontaneous
  Country: JP (occurrence: JP)
  Receive Date: 20241014
  Receipt Date: 20241204
  Transmission Date: 20250115
  Serious: Yes (Other)
  Sender: JOHNSON AND JOHNSON
  Company Number: JP-JNJFOC-20241034198

PATIENT
  Age: 48 Year
  Sex: Female

DRUGS (3)
  1. HALOMONTH [Suspect]
     Active Substance: HALOPERIDOL DECANOATE
     Indication: Delirium
     Dosage: DOSE UNKNOWN
     Route: 030
  2. HALOPERIDOL DECANOATE [Suspect]
     Active Substance: HALOPERIDOL DECANOATE
     Indication: Delirium
     Dosage: DOSE UNKNOWN
     Route: 030
  3. UNSPECIFIED INGREDIENT [Concomitant]
     Active Substance: UNSPECIFIED INGREDIENT
     Dosage: DOSE UNKNOWN
     Route: 048

REACTIONS (4)
  - Cardiac arrest [Unknown]
  - Hypoxic-ischaemic encephalopathy [Unknown]
  - Torsade de pointes [Unknown]
  - Off label use [Unknown]
